FAERS Safety Report 17629948 (Version 1)
Quarter: 2020Q2

REPORT INFORMATION
  Report Type: Spontaneous
  Country: CA (occurrence: CA)
  Receive Date: 20200406
  Receipt Date: 20200406
  Transmission Date: 20200713
  Serious: Yes (Disabling, Other)
  Sender: FDA-Public Use
  Company Number: CA-PFIZER INC-2020138918

PATIENT
  Age: 15 Year
  Sex: Female
  Weight: 48 kg

DRUGS (13)
  1. MELPHALAN. [Concomitant]
     Active Substance: MELPHALAN
     Dosage: UNK
  2. BLEOMYCIN SULFATE [Concomitant]
     Active Substance: BLEOMYCIN SULFATE
     Dosage: UNK
     Route: 042
  3. DEXAMETHASONE. [Concomitant]
     Active Substance: DEXAMETHASONE
     Dosage: UNK
  4. VINORELBINE TARTRATE. [Concomitant]
     Active Substance: VINORELBINE TARTRATE
     Dosage: UNK
     Route: 042
  5. GEMCITABINE. [Concomitant]
     Active Substance: GEMCITABINE
     Dosage: UNK
  6. METHYLPREDNISOLONE. [Concomitant]
     Active Substance: METHYLPREDNISOLONE
     Dosage: UNK
  7. VINCRISTINE SULFATE. [Suspect]
     Active Substance: VINCRISTINE SULFATE
     Indication: HODGKIN^S DISEASE
     Dosage: 1.4 MG/M2, UNK
     Route: 042
  8. ADCETRIS [Suspect]
     Active Substance: BRENTUXIMAB VEDOTIN
     Indication: HODGKIN^S DISEASE
     Dosage: 60 MG/M2, UNK
     Route: 042
  9. BUSULFAN. [Concomitant]
     Active Substance: BUSULFAN
     Dosage: UNK
  10. CYCLOPHOSPHAMIDE. [Concomitant]
     Active Substance: CYCLOPHOSPHAMIDE
     Dosage: UNK
  11. DOXORUBICIN [Concomitant]
     Active Substance: DOXORUBICIN
     Dosage: UNK
     Route: 042
  12. ETOPOSIDE. [Concomitant]
     Active Substance: ETOPOSIDE
     Dosage: UNK
  13. PREDNISONE. [Concomitant]
     Active Substance: PREDNISONE
     Dosage: UNK

REACTIONS (9)
  - Neuropathy peripheral [Recovered/Resolved]
  - Paraesthesia [Recovered/Resolved]
  - Tremor [Recovered/Resolved]
  - Asthenia [Recovered/Resolved]
  - Dysgraphia [Recovered/Resolved]
  - Motor dysfunction [Recovered/Resolved]
  - Neurotoxicity [Recovered/Resolved]
  - Hypoaesthesia [Recovered/Resolved]
  - Mobility decreased [Recovered/Resolved]
